FAERS Safety Report 18054524 (Version 1)
Quarter: 2020Q3

REPORT INFORMATION
  Report Type: Spontaneous
  Country: US (occurrence: US)
  Receive Date: 20200722
  Receipt Date: 20200722
  Transmission Date: 20201103
  Serious: No
  Sender: FDA-Public Use
  Company Number: US-SA-2020SA189244

PATIENT

DRUGS (5)
  1. CENTRUM JR [MINERALS NOS;VITAMINS NOS] [Concomitant]
  2. DUPIXENT [Suspect]
     Active Substance: DUPILUMAB
     Dosage: 1 DF, QOW
     Route: 058
     Dates: start: 20191213
  3. FOLIC ACID. [Concomitant]
     Active Substance: FOLIC ACID
  4. PEPCID [Concomitant]
     Active Substance: FAMOTIDINE
  5. VITAMIN B6 [Concomitant]
     Active Substance: PYRIDOXINE HYDROCHLORIDE

REACTIONS (3)
  - White blood cell count decreased [Unknown]
  - Herpes zoster [Unknown]
  - Pruritus [Unknown]

NARRATIVE: CASE EVENT DATE: 2020
